FAERS Safety Report 8399424-X (Version None)
Quarter: 2012Q2

REPORT INFORMATION
  Report Type: 
  Country: None (occurrence: None)
  Receive Date: 20120531
  Receipt Date: 20120528
  Transmission Date: 20120825
  Serious: Yes (Other)
  Sender: FDA-Public Use
  Company Number: BR-BAYER-2012-053047

PATIENT
  Age: 45 Year
  Sex: Female

DRUGS (4)
  1. TEGRETOL [Concomitant]
     Indication: PAIN
     Dosage: 400 MG, BID
     Route: 048
     Dates: start: 20060101
  2. AMITRIPTYLINE HCL [Concomitant]
     Indication: PAIN
     Dosage: 25 MG, BID
     Route: 048
     Dates: start: 20030101
  3. CLONAZEPAM [Concomitant]
     Indication: SLEEP DISORDER THERAPY
     Dosage: 35 GTT, QD
     Route: 048
     Dates: start: 20020101
  4. BETASERON [Suspect]
     Indication: RELAPSING-REMITTING MULTIPLE SCLEROSIS
     Dosage: 1 ML, QOD
     Route: 058
     Dates: start: 20090101

REACTIONS (12)
  - EYE PAIN [None]
  - MULTIPLE SCLEROSIS RELAPSE [None]
  - BLINDNESS [None]
  - BALANCE DISORDER [None]
  - HALLUCINATION [None]
  - MUSCULAR WEAKNESS [None]
  - CHILLS [None]
  - ASTHENIA [None]
  - PYREXIA [None]
  - MUSCLE STRAIN [None]
  - PAIN [None]
  - TACHYCARDIA [None]
